FAERS Safety Report 8204177-1 (Version None)
Quarter: 2012Q1

REPORT INFORMATION
  Report Type: 
  Country: None (occurrence: None)
  Receive Date: 20120313
  Receipt Date: 20120305
  Transmission Date: 20120608
  Serious: Yes (Other)
  Sender: FDA-Public Use
  Company Number: JP-ASTELLAS-2012JP002023

PATIENT
  Age: 52 Year
  Sex: Female

DRUGS (4)
  1. PROGRAF [Suspect]
     Indication: PROPHYLAXIS AGAINST GRAFT VERSUS HOST DISEASE
     Route: 065
  2. CYCLOPHOSPHAMIDE [Concomitant]
     Dosage: 25 MG/KG, UNKNOWN/D
     Route: 065
  3. FLUDARABINE PHOSPHATE [Concomitant]
     Dosage: 30 MG/M2, UNKNOWN/D
     Route: 065
  4. METHOTREXATE [Concomitant]
     Indication: PROPHYLAXIS AGAINST GRAFT VERSUS HOST DISEASE
     Route: 065

REACTIONS (4)
  - DRUG INEFFECTIVE [None]
  - CYTOMEGALOVIRUS VIRAEMIA [None]
  - HERPES ZOSTER [None]
  - ACUTE GRAFT VERSUS HOST DISEASE [None]
